FAERS Safety Report 24034034 (Version 1)
Quarter: 2024Q3

REPORT INFORMATION
  Report Type: Spontaneous
  Country: BG (occurrence: BG)
  Receive Date: 20240701
  Receipt Date: 20240701
  Transmission Date: 20241016
  Serious: Yes (Hospitalization, Other)
  Sender: CHEPLAPHARM
  Company Number: BG-CHEPLA-2024008028

PATIENT
  Age: 70 Year
  Sex: Female

DRUGS (3)
  1. HYDROXYUREA [Suspect]
     Active Substance: HYDROXYUREA
     Indication: Essential thrombocythaemia
     Dosage: DAILY DOSE: 1000 MILLIGRAM
     Dates: start: 2005, end: 202204
  2. HYDROXYUREA [Suspect]
     Active Substance: HYDROXYUREA
     Indication: Essential thrombocythaemia
     Dosage: DAILY DOSE: 500 MILLIGRAM
     Dates: start: 202204, end: 202211
  3. LOW-DOSE ASPIRIN [Suspect]
     Active Substance: ASPIRIN
     Indication: Essential thrombocythaemia
     Dates: start: 2005

REACTIONS (5)
  - Squamous cell carcinoma of skin [Unknown]
  - Ischaemic stroke [Unknown]
  - Cardiac failure [Unknown]
  - Acute kidney injury [Unknown]
  - Drug ineffective [Unknown]

NARRATIVE: CASE EVENT DATE: 20221101
